FAERS Safety Report 5597168-0 (Version None)
Quarter: 2008Q1

REPORT INFORMATION
  Report Type: 
  Country: None (occurrence: None)
  Receive Date: 20080121
  Receipt Date: 20080111
  Transmission Date: 20080703
  Serious: Yes (Other)
  Sender: FDA-Public Use
  Company Number: HQWYE104809AUG04

PATIENT
  Sex: Female

DRUGS (2)
  1. PREMARIN [Suspect]
  2. MEDROXYPROGESTERONE ACETATE [Suspect]

REACTIONS (4)
  - BREAST CANCER METASTATIC [None]
  - CATARACT [None]
  - MITRAL VALVE INCOMPETENCE [None]
  - TRICUSPID VALVE INCOMPETENCE [None]
